FAERS Safety Report 8508134-7 (Version None)
Quarter: 2012Q2

REPORT INFORMATION
  Report Type: 
  Country: None (occurrence: None)
  Receive Date: 20120405
  Receipt Date: 20090812
  Transmission Date: 20120825
  Serious: Yes (Hospitalization)
  Sender: FDA-Public Use
  Company Number: PHEH2009US09367

PATIENT
  Age: 52 Year
  Sex: Female
  Weight: 79.4 kg

DRUGS (4)
  1. SIMVASTATIN [Concomitant]
  2. CALTRATE + D COLECALCIFEROL [Concomitant]
  3. RECLAST [Suspect]
     Dosage: 5 MG IV YEARLY
     Route: 042
     Dates: start: 20090710
  4. VITAMIN D [Concomitant]

REACTIONS (2)
  - PAIN [None]
  - PYREXIA [None]
